FAERS Safety Report 10017325 (Version 1)
Quarter: 2014Q1

REPORT INFORMATION
  Report Type: Spontaneous
  Country: US (occurrence: None)
  Receive Date: 20140313
  Receipt Date: 20140313
  Transmission Date: 20141002
  Serious: Yes (Disabling, Other)
  Sender: FDA-Public Use
  Company Number: None

PATIENT
  Age: 53 Year
  Sex: Male
  Weight: 95.26 kg

DRUGS (1)
  1. NASACORT AQ [Suspect]
     Dosage: 2 SQUIRTS PER NOSTRIL - 110MCG  ONCE DAILY
     Route: 055
     Dates: start: 20030101, end: 20090701

REACTIONS (1)
  - Cataract [None]
